FAERS Safety Report 20630606 (Version 2)
Quarter: 2022Q2

REPORT INFORMATION
  Report Type: Report from Study
  Country: FR (occurrence: None)
  Receive Date: 20220324
  Receipt Date: 20220412
  Transmission Date: 20220720
  Serious: Yes (Death, Hospitalization)
  Sender: FDA-Public Use
  Company Number: FR-ROCHE-3057974

PATIENT
  Age: 55 Year
  Sex: Female
  Weight: 59.5 kg

DRUGS (4)
  1. ATEZOLIZUMAB [Suspect]
     Active Substance: ATEZOLIZUMAB
     Indication: Neoplasm
     Dosage: ON 28/JAN/2022, RECEIVED LAST DOSE OF ATEZOLIZUMAB BEFORE EVENT ONSET (2600 MG)
     Route: 041
     Dates: start: 20220107
  2. MORPHINE [Concomitant]
     Active Substance: MORPHINE
     Dates: start: 20220313
  3. CEFTRIAXONE SODIUM [Concomitant]
     Active Substance: CEFTRIAXONE SODIUM
     Dates: start: 202203
  4. MIDAZOLAM [Concomitant]
     Active Substance: MIDAZOLAM
     Dates: start: 20220313

REACTIONS (1)
  - Disease progression [Fatal]

NARRATIVE: CASE EVENT DATE: 20220216
